FAERS Safety Report 22130205 (Version 1)
Quarter: 2023Q1

REPORT INFORMATION
  Report Type: Report from Study
  Country: US (occurrence: US)
  Receive Date: 20230323
  Receipt Date: 20230323
  Transmission Date: 20230418
  Serious: No
  Sender: FDA-Public Use
  Company Number: US-INCYTE CORPORATION-2023IN001487

PATIENT

DRUGS (1)
  1. JAKAFI [Suspect]
     Active Substance: RUXOLITINIB
     Indication: Primary myelofibrosis
     Dosage: 10 MILLIGRAM, BID
     Route: 065
     Dates: start: 20230207

REACTIONS (7)
  - Night sweats [Unknown]
  - Bone pain [Unknown]
  - Paraesthesia [Unknown]
  - Poor quality sleep [Unknown]
  - Condition aggravated [Unknown]
  - Tongue pruritus [Unknown]
  - Dizziness [Unknown]
